FAERS Safety Report 4768080-1 (Version None)
Quarter: 2005Q3

REPORT INFORMATION
  Report Type: 
  Country: None (occurrence: None)
  Receive Date: 20050912
  Receipt Date: 20050912
  Transmission Date: 20060218
  Serious: Yes (Life-Threatening, Hospitalization)
  Sender: FDA-Public Use
  Company Number: None

PATIENT
  Age: 13 Year
  Sex: Male
  Weight: 45.3597 kg

DRUGS (2)
  1. MOTRIN [Suspect]
     Indication: INFLUENZA LIKE ILLNESS
     Dosage: 250 MG   Q 4 TO 6 HOURS   PO
     Route: 048
     Dates: start: 20050110, end: 20050114
  2. MOTRIN [Suspect]
     Indication: PYREXIA
     Dosage: 250 MG   Q 4 TO 6 HOURS   PO
     Route: 048
     Dates: start: 20050110, end: 20050114

REACTIONS (9)
  - ASTHMA [None]
  - COUGH [None]
  - INFLUENZA LIKE ILLNESS [None]
  - MALAISE [None]
  - MYCOPLASMA INFECTION [None]
  - PHOTOPHOBIA [None]
  - PNEUMONIA [None]
  - PYREXIA [None]
  - STEVENS-JOHNSON SYNDROME [None]
